FAERS Safety Report 10205918 (Version 3)
Quarter: 2014Q3

REPORT INFORMATION
  Report Type: Spontaneous
  Country: US (occurrence: US)
  Receive Date: 20140530
  Receipt Date: 20140725
  Transmission Date: 20150326
  Serious: Yes (Other)
  Sender: FDA-Public Use
  Company Number: US-BEH-2014042931

PATIENT
  Age: 28 Year
  Sex: Male
  Weight: 64.2 kg

DRUGS (2)
  1. CARIMUNE [Suspect]
     Active Substance: HUMAN IMMUNOGLOBULIN G
     Indication: AXONAL NEUROPATHY
     Dates: start: 20120321
  2. PRIVIGEN [Suspect]
     Active Substance: HUMAN IMMUNOGLOBULIN G
     Indication: AXONAL NEUROPATHY
     Dates: start: 20120322

REACTIONS (12)
  - Bradycardia [Recovered/Resolved]
  - Presyncope [Recovered/Resolved]
  - Blood bilirubin increased [Recovered/Resolved]
  - Splenomegaly [Recovered/Resolved]
  - Abdominal pain [Recovered/Resolved]
  - Haematocrit decreased [Recovered/Resolved]
  - Haemoglobin decreased [Recovered/Resolved]
  - Haptoglobin decreased [Recovered/Resolved]
  - Haemolytic anaemia [Recovered/Resolved]
  - Splenic rupture [Recovered/Resolved]
  - Peritoneal haemorrhage [Recovered/Resolved]
  - Blood lactate dehydrogenase increased [Recovered/Resolved]

NARRATIVE: CASE EVENT DATE: 20120321
